FAERS Safety Report 16455722 (Version 2)
Quarter: 2020Q1

REPORT INFORMATION
  Report Type: Spontaneous
  Country: US (occurrence: US)
  Receive Date: 20190620
  Receipt Date: 20200220
  Transmission Date: 20200409
  Serious: Yes (Other)
  Sender: FDA-Public Use
  Company Number: US-SUN PHARMACEUTICAL INDUSTRIES LTD-2019R1-211050

PATIENT
  Age: 46 Year
  Sex: Male

DRUGS (2)
  1. VENLAFAXINE [Suspect]
     Active Substance: VENLAFAXINE HYDROCHLORIDE
     Indication: NARCOLEPSY
     Dosage: 225 MG ACCIDENTLY REDUCED TO 150 MG)
     Route: 065
  2. MODAFINIL. [Concomitant]
     Active Substance: MODAFINIL
     Indication: NARCOLEPSY
     Dosage: 200 MG IN MORNING AND 100 MG IN AFTERNOON
     Route: 065

REACTIONS (3)
  - Incorrect dose administered [Unknown]
  - Cataplexy [Recovered/Resolved]
  - Product dispensing error [Unknown]
